FAERS Safety Report 4921303-8 (Version None)
Quarter: 2006Q1

REPORT INFORMATION
  Report Type: 
  Country: None (occurrence: None)
  Receive Date: 20060224
  Receipt Date: 20051017
  Transmission Date: 20060701
  Serious: Yes (Disabling, Other)
  Sender: FDA-Public Use
  Company Number: CH-BRISTOL-MYERS SQUIBB COMPANY-13148218

PATIENT
  Sex: Female

DRUGS (3)
  1. SELIPRAN [Suspect]
     Indication: DYSLIPIDAEMIA
     Route: 048
     Dates: start: 20050314, end: 20050926
  2. SERESTA [Concomitant]
  3. LOPRESSOR [Concomitant]

REACTIONS (1)
  - ENDOMETRIAL CANCER [None]
